FAERS Safety Report 7346479-7 (Version None)
Quarter: 2011Q1

REPORT INFORMATION
  Report Type: 
  Country: None (occurrence: None)
  Receive Date: 20110311
  Receipt Date: 20110121
  Transmission Date: 20110831
  Serious: Yes (Hospitalization, Other)
  Sender: FDA-Public Use
  Company Number: US-BAYER-201020197NA

PATIENT
  Sex: Female
  Weight: 71.655 kg

DRUGS (4)
  1. YAZ [Suspect]
     Indication: CONTRACEPTION
     Dosage: UNK
     Dates: start: 20081023, end: 20090825
  2. YASMIN [Suspect]
     Indication: CONTRACEPTION
     Dosage: UNK
     Dates: start: 20081023, end: 20090825
  3. IBUPROFEN [Concomitant]
     Dosage: 600 MG, PRN
  4. IMITREX [Concomitant]
     Dosage: 50 MG, PRN
     Route: 048

REACTIONS (8)
  - FLANK PAIN [None]
  - BILIARY COLIC [None]
  - ABDOMINAL PAIN UPPER [None]
  - ABDOMINAL PAIN LOWER [None]
  - DIARRHOEA [None]
  - NEPHROLITHIASIS [None]
  - CHOLECYSTITIS [None]
  - DYSURIA [None]
